FAERS Safety Report 23153984 (Version 4)
Quarter: 2024Q2

REPORT INFORMATION
  Report Type: Spontaneous
  Country: JP (occurrence: JP)
  Receive Date: 20231107
  Receipt Date: 20240604
  Transmission Date: 20240716
  Serious: Yes (Hospitalization, Other)
  Sender: FDA-Public Use
  Company Number: JP-PFIZER INC-202300351737

PATIENT
  Age: 56 Year
  Sex: Male
  Weight: 57.4 kg

DRUGS (9)
  1. VFEND [Suspect]
     Active Substance: VORICONAZOLE
     Indication: Bronchopulmonary aspergillosis
     Dosage: 200-400 DAILY, 2X/DAY
     Route: 048
     Dates: start: 20230509, end: 20240226
  2. ENTRESTO [Concomitant]
     Active Substance: SACUBITRIL\VALSARTAN
     Indication: Hypertension
     Dosage: 200 MG, DAILY
     Route: 048
  3. PITAVASTATIN [Concomitant]
     Active Substance: PITAVASTATIN
     Indication: Lipids abnormal
     Dosage: 2 MG, DAILY
  4. PEMAFIBRATE [Concomitant]
     Active Substance: PEMAFIBRATE
     Indication: Lipids abnormal
     Dosage: 0.2 MG, DAILY
     Route: 048
  5. HUSCODE [Concomitant]
     Active Substance: CHLORPHENIRAMINE MALEATE\DIHYDROCODEINE PHOSPHATE\METHYLEPHEDRINE HYDROCHLORIDE, DL-
     Indication: Antitussive therapy
     Dosage: 9 DF, DAILY
  6. HOKUNALIN [TULOBUTEROL HYDROCHLORIDE] [Concomitant]
     Indication: Antitussive therapy
     Dosage: 2 MG, DAILY
  7. AMBROXOL [Concomitant]
     Active Substance: AMBROXOL
     Indication: Productive cough
     Dosage: 45 MG, DAILY
  8. ALLEGRA [Concomitant]
     Active Substance: FEXOFENADINE HYDROCHLORIDE
     Indication: Pruritus
     Dosage: 120 MG, DAILY
  9. CODEINE PHOSPHATE [Concomitant]
     Active Substance: CODEINE PHOSPHATE
     Indication: Antitussive therapy
     Dosage: 6 G, DAILY

REACTIONS (3)
  - Cardiac failure [Recovered/Resolved with Sequelae]
  - Motor dysfunction [Recovered/Resolved with Sequelae]
  - Intentional dose omission [Unknown]

NARRATIVE: CASE EVENT DATE: 20230701
